FAERS Safety Report 21239520 (Version 1)
Quarter: 2022Q3

REPORT INFORMATION
  Report Type: Spontaneous
  Country: ES (occurrence: ES)
  Receive Date: 20220822
  Receipt Date: 20220822
  Transmission Date: 20221026
  Serious: Yes (Death, Other)
  Sender: FDA-Public Use
  Company Number: ES-ALLERGAN-2227396US

PATIENT

DRUGS (4)
  1. NITROGLYCERIN [Suspect]
     Active Substance: NITROGLYCERIN
     Indication: COVID-19
  2. HYDROXYCHLOROQUINE [Suspect]
     Active Substance: HYDROXYCHLOROQUINE
     Indication: COVID-19
  3. DIGOXIN [Suspect]
     Active Substance: DIGOXIN
     Indication: COVID-19
  4. METAMIZOLE [Suspect]
     Active Substance: METAMIZOLE
     Indication: COVID-19

REACTIONS (2)
  - Tachyarrhythmia [Fatal]
  - Off label use [Unknown]
